FAERS Safety Report 14252131 (Version 1)
Quarter: 2017Q4

REPORT INFORMATION
  Report Type: Spontaneous
  Country: US (occurrence: None)
  Receive Date: 20171205
  Receipt Date: 20171205
  Transmission Date: 20180321
  Serious: Yes (Hospitalization)
  Sender: FDA-Public Use
  Company Number: None

PATIENT
  Age: 84 Year
  Sex: Female
  Weight: 49.44 kg

DRUGS (8)
  1. SOTALOL. [Suspect]
     Active Substance: SOTALOL
     Indication: ATRIAL FIBRILLATION
     Route: 048
     Dates: start: 20170804, end: 20170804
  2. PRAVASTATIN. [Concomitant]
     Active Substance: PRAVASTATIN
  3. ELIQUIS [Concomitant]
     Active Substance: APIXABAN
  4. METOPROLOL. [Concomitant]
     Active Substance: METOPROLOL
  5. ASPIRIN. [Concomitant]
     Active Substance: ASPIRIN
  6. TYLENOL [Concomitant]
     Active Substance: ACETAMINOPHEN
  7. DILTIAZEM. [Concomitant]
     Active Substance: DILTIAZEM
  8. GLIPIZIDE. [Concomitant]
     Active Substance: GLIPIZIDE

REACTIONS (3)
  - Dizziness [None]
  - Apparent death [None]
  - Pain [None]

NARRATIVE: CASE EVENT DATE: 20170804
